FAERS Safety Report 5848371-3 (Version None)
Quarter: 2008Q3

REPORT INFORMATION
  Report Type: 
  Country: None (occurrence: None)
  Receive Date: 20080818
  Receipt Date: 20080807
  Transmission Date: 20090109
  Serious: Yes (Hospitalization, Other)
  Sender: FDA-Public Use
  Company Number: GB-AVENTIS-200810177EU

PATIENT
  Sex: Female

DRUGS (8)
  1. GENTAMICIN [Suspect]
     Dosage: DOSE: UNK
     Route: 064
  2. METRONIDAZOLE HCL [Suspect]
     Dosage: DOSE: UNK
     Route: 064
  3. ACETAMINOPHEN [Suspect]
     Dosage: DOSE: UNK
     Route: 064
  4. CHLORPHENIRAMINE MALEATE [Suspect]
     Dosage: DOSE: UNK
     Route: 064
  5. MORPHINE [Suspect]
     Dosage: DOSE: UNK
     Route: 064
  6. CYCLOSPORINE [Suspect]
     Dosage: DOSE: UNK
     Route: 064
  7. DEXAMETHASONE [Suspect]
     Dosage: DOSE: UNK
     Route: 064
  8. LACTATE RINGER [Concomitant]
     Dosage: DOSE: UNK
     Route: 064

REACTIONS (2)
  - DRUG EXPOSURE DURING PREGNANCY [None]
  - PREMATURE BABY [None]
